FAERS Safety Report 13824664 (Version 1)
Quarter: 2017Q3

REPORT INFORMATION
  Report Type: Spontaneous
  Country: US (occurrence: US)
  Receive Date: 20170802
  Receipt Date: 20170802
  Transmission Date: 20171127
  Serious: No
  Sender: FDA-Public Use
  Company Number: US-PFIZER INC-2017068604

PATIENT
  Age: 80 Year
  Sex: Female
  Weight: 87.5 kg

DRUGS (3)
  1. CYTOXAN [Suspect]
     Active Substance: CYCLOPHOSPHAMIDE
     Indication: BREAST CANCER STAGE IV
     Dosage: UNK UNK, CYCLIC ADJUVANT CHEMOTHERAPY FEC100: TOTAL 3 CYCLES IN YEAR 2014 OR 2015 (1 IN 1 CYCLICAL))
  2. FLUOROURACIL. [Suspect]
     Active Substance: FLUOROURACIL
     Indication: BREAST CANCER STAGE IV
     Dosage: UNK, CYCLIC ADJUVANT CHEMOTHERAPY FEC100: TOTAL 3 CYCLES IN YEAR 2014 OR 2015 (1 IN 1 CYCLICAL))
  3. EPIRUBICIN HCL [Suspect]
     Active Substance: EPIRUBICIN HYDROCHLORIDE
     Indication: BREAST CANCER STAGE IV
     Dosage: UNK, CYCLIC ADJUVANT CHEMOTHERAPY FEC100: TOTAL 3 CYCLES IN YEAR 2014 OR 2015 (1 IN 1 CYCLICAL)

REACTIONS (1)
  - Osteoporosis [Unknown]

NARRATIVE: CASE EVENT DATE: 201507
